FAERS Safety Report 7294756-0 (Version None)
Quarter: 2011Q1

REPORT INFORMATION
  Report Type: 
  Country: None (occurrence: None)
  Receive Date: 20110203
  Receipt Date: 20110118
  Transmission Date: 20110831
  Serious: Yes (Hospitalization, Other)
  Sender: FDA-Public Use
  Company Number: 025784

PATIENT
  Sex: Male

DRUGS (1)
  1. CIMZIA [Suspect]
     Indication: CROHN'S DISEASE
     Dosage: (SUBCUTANEOUS)
     Route: 058
     Dates: start: 20090114

REACTIONS (4)
  - WEIGHT DECREASED [None]
  - PALLOR [None]
  - FREQUENT BOWEL MOVEMENTS [None]
  - BLOOD POTASSIUM DECREASED [None]
